FAERS Safety Report 16905077 (Version 1)
Quarter: 2019Q4

REPORT INFORMATION
  Report Type: Spontaneous
  Country: US (occurrence: US)
  Receive Date: 20191010
  Receipt Date: 20191010
  Transmission Date: 20200122
  Serious: Yes (Other)
  Sender: FDA-Public Use
  Company Number: None

PATIENT
  Age: 5 Year
  Sex: Female

DRUGS (1)
  1. QVAR [Suspect]
     Active Substance: BECLOMETHASONE DIPROPIONATE
     Indication: ASTHMA
     Dates: start: 20170301, end: 20170317

REACTIONS (5)
  - Anger [None]
  - Reading disorder [None]
  - Social avoidant behaviour [None]
  - Depressed mood [None]
  - Visual impairment [None]

NARRATIVE: CASE EVENT DATE: 20170314
